FAERS Safety Report 21097692 (Version 1)
Quarter: 2022Q3

REPORT INFORMATION
  Report Type: Report from Study
  Country: FR (occurrence: None)
  Receive Date: 20220719
  Receipt Date: 20220719
  Transmission Date: 20221026
  Serious: Yes (Other)
  Sender: FDA-Public Use
  Company Number: FR-ROCHE-3140374

PATIENT
  Age: 31 Year
  Sex: Female

DRUGS (2)
  1. RITUXIMAB [Suspect]
     Active Substance: RITUXIMAB
     Indication: Vasculitis necrotising
     Dosage: THERAPY DATES ON 18/DEC/2020, 30/JUN/2021, 21/DEC/2021
     Route: 041
     Dates: start: 20200630
  2. PLACEBO [Suspect]
     Active Substance: UNSPECIFIED INGREDIENT
     Indication: Eosinophilic granulomatosis with polyangiitis
     Route: 048
     Dates: start: 20200813

REACTIONS (1)
  - COVID-19 [Unknown]

NARRATIVE: CASE EVENT DATE: 20220203
